FAERS Safety Report 19434978 (Version 1)
Quarter: 2021Q2

REPORT INFORMATION
  Report Type: Spontaneous
  Country: US (occurrence: US)
  Receive Date: 20210617
  Receipt Date: 20210617
  Transmission Date: 20210717
  Serious: No
  Sender: FDA-Public Use
  Company Number: US-ROCHE-2687289

PATIENT
  Age: 35 Year
  Sex: Female
  Weight: 86.26 kg

DRUGS (5)
  1. METHOTREXATE. [Concomitant]
     Active Substance: METHOTREXATE
     Indication: RHEUMATOID ARTHRITIS
     Route: 058
     Dates: start: 201910
  2. HYDROXYCHLOROQUINE [Concomitant]
     Active Substance: HYDROXYCHLOROQUINE
     Indication: RHEUMATOID ARTHRITIS
     Route: 048
     Dates: start: 202003
  3. ACTEMRA [Suspect]
     Active Substance: TOCILIZUMAB
     Indication: RHEUMATOID ARTHRITIS
     Dosage: YES
     Route: 058
     Dates: start: 202008
  4. ACTEMRA [Suspect]
     Active Substance: TOCILIZUMAB
  5. PREDNISONE. [Concomitant]
     Active Substance: PREDNISONE
     Dosage: 1?2 TABLETS TAKEN PER DOSE.
     Route: 048

REACTIONS (6)
  - Heart rate increased [Not Recovered/Not Resolved]
  - Needle issue [Unknown]
  - Rheumatoid arthritis [Recovering/Resolving]
  - Exposure via skin contact [Recovered/Resolved]
  - Pain [Unknown]
  - Skin abrasion [Not Recovered/Not Resolved]

NARRATIVE: CASE EVENT DATE: 20200901
